FAERS Safety Report 9249095 (Version 1)
Quarter: 2013Q1

REPORT INFORMATION
  Report Type: Spontaneous
  Country: US (occurrence: None)
  Receive Date: 20130305
  Receipt Date: 20130305
  Transmission Date: 20140127
  Serious: Yes (Other)
  Sender: FDA-Public Use
  Company Number: 163-21880-12061288

PATIENT
  Age: 68 Year
  Sex: Female

DRUGS (1)
  1. REVLIMID [Suspect]
     Dosage: 25 MG, AT BEDTIME DAYS 1-21 Q 28
     Dates: start: 20120509, end: 20120530

REACTIONS (2)
  - Full blood count [None]
  - Nausea [None]
